FAERS Safety Report 19011940 (Version 1)
Quarter: 2021Q1

REPORT INFORMATION
  Report Type: Spontaneous
  Country: US (occurrence: US)
  Receive Date: 20210316
  Receipt Date: 20210316
  Transmission Date: 20210420
  Serious: No
  Sender: FDA-Public Use
  Company Number: None

PATIENT
  Age: 69 Year
  Sex: Male
  Weight: 70.31 kg

DRUGS (2)
  1. OLANZAPINE. [Suspect]
     Active Substance: OLANZAPINE
     Indication: INSOMNIA
     Route: 048
     Dates: start: 20190513, end: 20210311
  2. OLANZAPINE. [Suspect]
     Active Substance: OLANZAPINE
     Indication: AGITATION
     Route: 048
     Dates: start: 20190513, end: 20210311

REACTIONS (2)
  - Neutropenia [None]
  - Leukopenia [None]

NARRATIVE: CASE EVENT DATE: 20210302
